FAERS Safety Report 5081948-4 (Version None)
Quarter: 2006Q3

REPORT INFORMATION
  Report Type: 
  Country: None (occurrence: None)
  Receive Date: 20060811
  Receipt Date: 20060804
  Transmission Date: 20061208
  Serious: Yes (Life-Threatening, Hospitalization)
  Sender: FDA-Public Use
  Company Number: GXKR2006GB04543

PATIENT
  Age: 55 Year
  Sex: Male

DRUGS (8)
  1. FUROSEMIDE [Suspect]
     Indication: PULMONARY OEDEMA
     Dosage: 20 MG, ORAL
     Route: 048
  2. CO-CODAMOL              (CODEINE PHOSPHATE, PARACETAMOL) [Concomitant]
  3. EPANUTIN  (PHENYTOIN SODIUM) [Concomitant]
  4. HYDROCORTISONE [Concomitant]
  5. LEVOTHYROXINE SODIUM [Concomitant]
  6. METFORMIN [Concomitant]
  7. NOVOMIX       (INSULIN ASPART) [Concomitant]
  8. SIMVASTATIN [Concomitant]

REACTIONS (2)
  - ANGIONEUROTIC OEDEMA [None]
  - PRURITUS [None]
